FAERS Safety Report 9241588 (Version 1)
Quarter: 2013Q2

REPORT INFORMATION
  Report Type: Spontaneous
  Country: IT (occurrence: IT)
  Receive Date: 20130419
  Receipt Date: 20130419
  Transmission Date: 20140414
  Serious: Yes (Other)
  Sender: FDA-Public Use
  Company Number: PHHY2013IT036513

PATIENT
  Sex: Female

DRUGS (3)
  1. ZOMETA [Suspect]
     Indication: PLASMA CELL MYELOMA
     Dosage: 4 MG, MONTHLY
     Route: 042
     Dates: start: 20080501, end: 20090710
  2. ALENDRONIC ACID [Suspect]
     Indication: PLASMA CELL MYELOMA
     Dosage: 70 MG, WEEKLY
     Route: 048
     Dates: start: 20091001, end: 20100101
  3. DEXAMETHASONE [Suspect]
     Indication: PLASMA CELL MYELOMA
     Dosage: 1 DF (1 POS. UNIT)
     Route: 030
     Dates: start: 20090701, end: 20100901

REACTIONS (1)
  - Osteonecrosis of jaw [Recovered/Resolved]
